FAERS Safety Report 8997975 (Version 3)
Quarter: 2013Q1

REPORT INFORMATION
  Report Type: Spontaneous
  Country: JP (occurrence: JP)
  Receive Date: 20130104
  Receipt Date: 20130222
  Transmission Date: 20140127
  Serious: Yes (Death, Other)
  Sender: FDA-Public Use
  Company Number: JP-ROCHE-1174260

PATIENT
  Age: 69 None
  Sex: Female
  Weight: 45 kg

DRUGS (4)
  1. AVASTIN [Suspect]
     Indication: BREAST CANCER METASTATIC
     Route: 041
     Dates: start: 20121128, end: 20121212
  2. PACLITAXEL [Concomitant]
     Indication: BREAST CANCER METASTATIC
     Route: 041
     Dates: start: 20121128, end: 20121212
  3. AMOBAN [Concomitant]
     Indication: INSOMNIA
     Route: 048
     Dates: start: 20120919, end: 20121216
  4. DEPAKENE-R [Concomitant]
     Indication: PROPHYLAXIS
     Route: 048
     Dates: start: 20121118, end: 20121201

REACTIONS (5)
  - Sudden death [Fatal]
  - Unresponsive to stimuli [Not Recovered/Not Resolved]
  - Dizziness [Unknown]
  - Vomiting [Unknown]
  - Lymphangiosis carcinomatosa [Fatal]
